FAERS Safety Report 8157302-5 (Version None)
Quarter: 2012Q1

REPORT INFORMATION
  Report Type: 
  Country: None (occurrence: None)
  Receive Date: 20120222
  Receipt Date: 20120215
  Transmission Date: 20120608
  Serious: Yes (Death)
  Sender: FDA-Public Use
  Company Number: US-INCYTE CORPORATION-2012IN000200

PATIENT
  Sex: Male

DRUGS (26)
  1. AVALIDE [Concomitant]
  2. PHOSLO [Concomitant]
     Dosage: 667 MG, UNK
  3. LIDOCAINE [Concomitant]
  4. PREDNISONE [Concomitant]
     Dosage: 5 MG, UNK
  5. LEVEMIR [Concomitant]
     Dosage: FLEXPEN
  6. DILTIAZEM HCL [Concomitant]
     Dosage: 120 MG, UNK
  7. ISOSORBIDE MONONITRATE [Concomitant]
     Dosage: 10 MG, UNK
  8. VICODIN [Concomitant]
     Dosage: 5-500
  9. ASPIRIN [Concomitant]
     Dosage: 81 MG, UNK
  10. JAKAFI [Suspect]
     Dosage: 10 MG, BID
     Route: 048
  11. OMEPRAZOLE [Concomitant]
     Dosage: 40 MG, UNK
  12. NITROGLYCERIN [Concomitant]
     Dosage: 0.6 MG, UNK
     Route: 062
  13. GABAPENTIN [Concomitant]
     Dosage: 100 MG, UNK
  14. DIGOXIN [Concomitant]
     Dosage: 0.125 MG, UNK
  15. LEVOTHYROXINE SODIUM [Concomitant]
     Dosage: 100 MCG, UNK
  16. ZOCOR [Concomitant]
     Dosage: 40 MG, UNK
  17. ALLOPURINOL [Concomitant]
     Dosage: 100 MG, UNK
  18. PLAVIX [Concomitant]
     Dosage: 75 MG, UNK
  19. LAMISIL AT [Concomitant]
  20. SIMVASTATIN [Concomitant]
     Dosage: 10 MG, UNK
  21. METOLAZONE [Concomitant]
     Dosage: 5 MG, UNK
  22. MULTI-VITAMINS [Concomitant]
  23. FUROSEMIDE [Concomitant]
     Dosage: 20 MG, UNK
  24. CARVEDILOL [Concomitant]
     Dosage: 12.5 MG, UNK
  25. LOVAZA [Concomitant]
     Dosage: 1 G, UNK
  26. GLUCOSAMINE/CHONDROITIN [Concomitant]
     Dosage: ADVANCED

REACTIONS (1)
  - DEATH [None]
